FAERS Safety Report 8143565-9 (Version None)
Quarter: 2012Q1

REPORT INFORMATION
  Report Type: 
  Country: None (occurrence: None)
  Receive Date: 20120217
  Receipt Date: 20111021
  Transmission Date: 20120608
  Serious: No
  Sender: FDA-Public Use
  Company Number: US-GLAXOSMITHKLINE-A0950051A

PATIENT
  Age: 59 Year
  Sex: Female

DRUGS (9)
  1. LUPRON [Concomitant]
  2. PROTONIX [Concomitant]
  3. ANTI-EMETIC [Concomitant]
  4. VOTRIENT [Suspect]
     Indication: NEOPLASM MALIGNANT
     Dosage: 800MG PER DAY
     Route: 048
     Dates: start: 20111013
  5. OXYCODONE HCL [Concomitant]
  6. CLONOPIN [Concomitant]
  7. LASIX [Concomitant]
  8. BLOOD THINNER [Concomitant]
     Indication: ANTICOAGULANT THERAPY
     Route: 065
  9. NADOLOL [Concomitant]

REACTIONS (3)
  - NAIL DISCOLOURATION [None]
  - WHITE BLOOD CELL COUNT DECREASED [None]
  - NAUSEA [None]
